FAERS Safety Report 15595593 (Version 3)
Quarter: 2018Q4

REPORT INFORMATION
  Report Type: Report from Study
  Country: US (occurrence: US)
  Receive Date: 20181107
  Receipt Date: 20181120
  Transmission Date: 20190205
  Serious: Yes (Death, Hospitalization, Other)
  Sender: FDA-Public Use
  Company Number: US-ROCHE-2208869

PATIENT
  Age: 71 Year
  Sex: Female
  Weight: 47.7 kg

DRUGS (4)
  1. GUADECITABINE [Suspect]
     Active Substance: GUADECITABINE
     Indication: OVARIAN EPITHELIAL CANCER
     Dosage: MOST RECENT DOSE OF GUADECITABINE PRIOR TO THE ONSET OF EVENTS: 21/SEP/2018 (150 MG)
     Route: 058
     Dates: start: 20180917, end: 20180921
  2. CARBOPLATIN. [Concomitant]
     Active Substance: CARBOPLATIN
     Indication: OVARIAN EPITHELIAL CANCER
     Route: 065
     Dates: start: 201705, end: 201808
  3. TAXOL [Concomitant]
     Active Substance: PACLITAXEL
     Indication: OVARIAN EPITHELIAL CANCER
     Route: 065
     Dates: start: 201705, end: 201808
  4. ATEZOLIZUMAB. [Suspect]
     Active Substance: ATEZOLIZUMAB
     Indication: OVARIAN EPITHELIAL CANCER
     Dosage: MOST RECENT DOSE OF GUADECITABINE PRIOR TO THE ONSET OF EVENTS: 24/SEP/2018 (840 MG)
     Route: 042
     Dates: start: 20180924, end: 20180924

REACTIONS (4)
  - Anaemia [Unknown]
  - Neutrophil count decreased [Unknown]
  - Fatigue [Unknown]
  - Hyponatraemia [Unknown]

NARRATIVE: CASE EVENT DATE: 20181008
